FAERS Safety Report 6200235-1 (Version None)
Quarter: 2009Q2

REPORT INFORMATION
  Report Type: 
  Country: None (occurrence: None)
  Receive Date: 20090522
  Receipt Date: 20090522
  Transmission Date: 20091009
  Serious: Yes (Other)
  Sender: FDA-Public Use
  Company Number: US-PFIZER INC-2009185165

PATIENT
  Sex: Female

DRUGS (2)
  1. CELEBREX [Suspect]
  2. ALEVE [Concomitant]

REACTIONS (6)
  - BACK PAIN [None]
  - KNEE OPERATION [None]
  - MUSCULOSKELETAL PAIN [None]
  - NECK PAIN [None]
  - PAIN IN EXTREMITY [None]
  - SURGERY [None]
